FAERS Safety Report 17068075 (Version 1)
Quarter: 2019Q4

REPORT INFORMATION
  Report Type: Report from Study
  Country: IE (occurrence: IE)
  Receive Date: 20191122
  Receipt Date: 20191122
  Transmission Date: 20200122
  Serious: Yes (Other)
  Sender: FDA-Public Use
  Company Number: IE-SHIRE-IE201938781

PATIENT

DRUGS (1)
  1. CUVITRU [Suspect]
     Active Substance: HUMAN IMMUNOGLOBULIN G
     Indication: PRODUCT USED FOR UNKNOWN INDICATION
     Dosage: 2 GRAM, 1X/WEEK
     Route: 058
     Dates: start: 20190228

REACTIONS (4)
  - Crying [Recovering/Resolving]
  - Pharyngitis [Recovering/Resolving]
  - Infusion site pain [Not Recovered/Not Resolved]
  - Lower respiratory tract infection [Recovering/Resolving]
